FAERS Safety Report 10784711 (Version 1)
Quarter: 2015Q1

REPORT INFORMATION
  Report Type: Spontaneous
  Country: CA (occurrence: None)
  Receive Date: 20150209
  Receipt Date: 20150209
  Transmission Date: 20150721
  Serious: Yes (Other)
  Sender: FDA-Public Use
  Company Number: 2015COV00022

PATIENT
  Age: 67 Year
  Sex: Female

DRUGS (4)
  1. HYDROCHLOROTHIAZIDE (HYDROCHLOROTHIAZIDE) UNKNOWN [Suspect]
     Active Substance: HYDROCHLOROTHIAZIDE
  2. METOPROLOL [Concomitant]
     Active Substance: METOPROLOL
  3. RAMIPRIL. [Concomitant]
     Active Substance: RAMIPRIL
  4. METFORMIN [Concomitant]
     Active Substance: METFORMIN HYDROCHLORIDE

REACTIONS (8)
  - Angle closure glaucoma [None]
  - Nausea [None]
  - Iris adhesions [None]
  - Hyponatraemia [None]
  - Choroidal effusion [None]
  - Pupil fixed [None]
  - Conjunctival hyperaemia [None]
  - Corneal oedema [None]
